FAERS Safety Report 7415595-3 (Version None)
Quarter: 2011Q2

REPORT INFORMATION
  Report Type: 
  Country: None (occurrence: None)
  Receive Date: 20110414
  Receipt Date: 20110407
  Transmission Date: 20111010
  Serious: Yes (Other)
  Sender: FDA-Public Use
  Company Number: GB-JNJFOC-20110205222

PATIENT
  Sex: Female
  Weight: 70 kg

DRUGS (8)
  1. SENNA [Concomitant]
  2. ACETAMINOPHEN [Suspect]
     Indication: PRODUCT USED FOR UNKNOWN INDICATION
     Route: 065
  3. ALBUTEROL SULFATE AUTOHALER [Concomitant]
  4. BUDESONIDE [Concomitant]
  5. LEVOTHYROXINE [Concomitant]
  6. TRAMADOL HYDROCHLORIDE [Suspect]
     Indication: BACK PAIN
     Route: 048
  7. AD CAL [Concomitant]
  8. TIOTROPIUM BROMIDE [Concomitant]

REACTIONS (2)
  - HEPATITIS [None]
  - LIVER FUNCTION TEST ABNORMAL [None]
